FAERS Safety Report 4340680-2 (Version None)
Quarter: 2004Q2

REPORT INFORMATION
  Report Type: 
  Country: None (occurrence: None)
  Receive Date: 20040413
  Receipt Date: 20040330
  Transmission Date: 20050107
  Serious: Yes (Hospitalization)
  Sender: FDA-Public Use
  Company Number: 2004-052

PATIENT
  Age: 17 Year
  Sex: Female
  Weight: 57.1 kg

DRUGS (6)
  1. METOCLOPRAMIDE [Suspect]
     Indication: HEPATITIS ACUTE
     Dosage: 10 MG PO 30 MIN AC + QHS
     Route: 048
     Dates: start: 20040202, end: 20040204
  2. METOCLOPRAMIDE [Suspect]
     Indication: NAUSEA
     Dosage: 10 MG PO 30 MIN AC + QHS
     Route: 048
     Dates: start: 20040202, end: 20040204
  3. METOCLOPRAMIDE [Suspect]
     Indication: VOMITING
     Dosage: 10 MG PO 30 MIN AC + QHS
     Route: 048
     Dates: start: 20040202, end: 20040204
  4. ZOLOFT [Concomitant]
  5. DEPO-PROVERA [Concomitant]
  6. ULTRAM [Concomitant]

REACTIONS (1)
  - DYSTONIA [None]
